FAERS Safety Report 7376318-X (Version None)
Quarter: 2011Q1

REPORT INFORMATION
  Report Type: 
  Country: None (occurrence: None)
  Receive Date: 20110315
  Receipt Date: 20110303
  Transmission Date: 20110831
  Serious: Yes (Hospitalization, Disabling)
  Sender: FDA-Public Use
  Company Number: CIP11000211

PATIENT
  Age: 55 Year
  Sex: Female

DRUGS (4)
  1. LAMISIL [Concomitant]
  2. ANITIHYPERTENSIVES [Concomitant]
  3. ACTONEL [Suspect]
     Dosage: 150 MG ONCE MONTHLY, ORAL
     Route: 048
     Dates: start: 20110125, end: 20110101
  4. LISINOPRIL [Concomitant]

REACTIONS (4)
  - MUSCULOSKELETAL PAIN [None]
  - COSTOCHONDRITIS [None]
  - DYSPNOEA [None]
  - CHEST PAIN [None]
